FAERS Safety Report 4814122-4 (Version None)
Quarter: 2005Q4

REPORT INFORMATION
  Report Type: 
  Country: None (occurrence: None)
  Receive Date: 20051028
  Receipt Date: 20050705
  Transmission Date: 20060501
  Serious: No
  Sender: FDA-Public Use
  Company Number: US-GLAXOSMITHKLINE-A0564934A

PATIENT
  Age: 80 Year
  Sex: Male
  Weight: 111.8 kg

DRUGS (11)
  1. ADVAIR DISKUS 100/50 [Suspect]
     Indication: EMPHYSEMA
     Dosage: 1PUFF TWICE PER DAY
     Route: 055
     Dates: start: 20040304
  2. GLUCOPHAGE [Concomitant]
  3. ALPRAZOLAM [Concomitant]
  4. AMLOR [Concomitant]
  5. DITROPAN XL [Concomitant]
  6. ECOTRIN [Concomitant]
  7. MULTI-VITAMINS [Concomitant]
  8. NIASPAN [Concomitant]
  9. GLYCILAX [Concomitant]
  10. PRAVACHOL [Concomitant]
  11. XALATAN [Concomitant]

REACTIONS (1)
  - BLOOD GLUCOSE INCREASED [None]
